FAERS Safety Report 24781464 (Version 1)
Quarter: 2024Q4

REPORT INFORMATION
  Report Type: Spontaneous
  Country: AU (occurrence: AU)
  Receive Date: 20241227
  Receipt Date: 20241227
  Transmission Date: 20250115
  Serious: Yes (Other)
  Sender: TEVA
  Company Number: AU-TEVA-VS-3278767

PATIENT
  Age: 35 Year
  Sex: Female

DRUGS (2)
  1. IMATINIB [Suspect]
     Active Substance: IMATINIB
     Indication: Product used for unknown indication
     Route: 065
  2. DASATINIB [Suspect]
     Active Substance: DASATINIB
     Indication: Product used for unknown indication
     Route: 065

REACTIONS (5)
  - Neutropenia [Unknown]
  - Anaemia [Unknown]
  - Drug resistance [Unknown]
  - Blast crisis in myelogenous leukaemia [Unknown]
  - Condition aggravated [Unknown]
